FAERS Safety Report 5041707-5 (Version None)
Quarter: 2006Q2

REPORT INFORMATION
  Report Type: 
  Country: None (occurrence: None)
  Receive Date: 20060630
  Receipt Date: 20060606
  Transmission Date: 20061013
  Serious: Yes (Other)
  Sender: FDA-Public Use
  Company Number: 2682/6023158

PATIENT
  Age: 54 Year
  Sex: Female

DRUGS (1)
  1. ATENOLOL [Suspect]
     Indication: HYPOTENSION
     Dosage: 25 MG ONCE DAILY

REACTIONS (5)
  - BREAST PAIN [None]
  - BREAST TENDERNESS [None]
  - EXERCISE TOLERANCE DECREASED [None]
  - INSOMNIA [None]
  - SWELLING [None]
